FAERS Safety Report 5844485-2 (Version None)
Quarter: 2008Q3

REPORT INFORMATION
  Report Type: 
  Country: None (occurrence: None)
  Receive Date: 20080812
  Receipt Date: 20080729
  Transmission Date: 20090109
  Serious: Yes (Other)
  Sender: FDA-Public Use
  Company Number: 237199J08USA

PATIENT
  Age: 61 Year
  Sex: Male
  Weight: 158.759 kg

DRUGS (4)
  1. REBIF [Suspect]
     Indication: MULTIPLE SCLEROSIS
     Dosage: 44 MCG, 3 IN 1 WEEKS, SUBCUTANEOUS
     Route: 058
     Dates: start: 20031215
  2. COZAAR (LORSARTAN POTASSIUM) [Concomitant]
  3. METOPROLOL (METOPROLOL /00376901/) [Concomitant]
  4. FUROSEMIDE (FUROSEMIDE /00032601/) [Concomitant]

REACTIONS (1)
  - HODGKIN'S DISEASE [None]
